FAERS Safety Report 13625113 (Version 1)
Quarter: 2017Q2

REPORT INFORMATION
  Report Type: Report from Study
  Country: CA (occurrence: CA)
  Receive Date: 20170608
  Receipt Date: 20170608
  Transmission Date: 20170830
  Serious: Yes (Life-Threatening, Other)
  Sender: FDA-Public Use
  Company Number: CA-BRISTOL-MYERS SQUIBB COMPANY-BMS-2017-050046

PATIENT
  Age: 13 Year
  Sex: Female
  Weight: 84.5 kg

DRUGS (4)
  1. NIVOLUMAB [Suspect]
     Active Substance: NIVOLUMAB
     Indication: NEOPLASM MALIGNANT
     Dosage: 3 MG/KG, UNK
     Route: 065
     Dates: start: 20170515
  2. PHENYTOIN. [Concomitant]
     Active Substance: PHENYTOIN
     Indication: SEIZURE
     Dosage: 100 MG, TID
     Route: 048
     Dates: start: 201705
  3. TYLENOL [Concomitant]
     Active Substance: ACETAMINOPHEN
     Indication: HEADACHE
     Dosage: 500 MG, UNK
     Route: 065
     Dates: start: 20170529
  4. ADVIL (MEFENAMIC ACID) [Concomitant]
     Active Substance: MEFENAMIC ACID
     Indication: HEADACHE
     Dosage: 250 MG, UNK
     Route: 065
     Dates: start: 20170529

REACTIONS (1)
  - Hydrocephalus [Not Recovered/Not Resolved]

NARRATIVE: CASE EVENT DATE: 20170531
